FAERS Safety Report 5793374-0 (Version None)
Quarter: 2008Q2

REPORT INFORMATION
  Report Type: 
  Country: None (occurrence: None)
  Receive Date: 20080627
  Receipt Date: 20080619
  Transmission Date: 20081010
  Serious: Yes (Other)
  Sender: FDA-Public Use
  Company Number: JP-ROCHE-564896

PATIENT
  Sex: Male
  Weight: 20 kg

DRUGS (1)
  1. TAMIFLU [Suspect]
     Dosage: DRUG: TAMIFLU DRY SYRUP 3 %.
     Route: 048
     Dates: start: 20070315, end: 20070316

REACTIONS (2)
  - ABNORMAL BEHAVIOUR [None]
  - PYREXIA [None]
